FAERS Safety Report 25180173 (Version 1)
Quarter: 2025Q2

REPORT INFORMATION
  Report Type: Spontaneous
  Country: US (occurrence: None)
  Receive Date: 20250409
  Receipt Date: 20250409
  Transmission Date: 20250716
  Serious: No
  Sender: FDA-CTU
  Company Number: None

PATIENT
  Age: 55 Year
  Sex: Female

DRUGS (1)
  1. OCRELIZUMAB [Suspect]
     Active Substance: OCRELIZUMAB
     Indication: Multiple sclerosis
     Route: 042
     Dates: start: 20181001, end: 20241104

REACTIONS (4)
  - Cough [None]
  - Interstitial lung disease [None]
  - Pneumonia [None]
  - Respiratory depression [None]

NARRATIVE: CASE EVENT DATE: 20241111
